FAERS Safety Report 5257284-X (Version None)
Quarter: 2007Q1

REPORT INFORMATION
  Report Type: 
  Country: None (occurrence: None)
  Receive Date: 20070302
  Receipt Date: 20061128
  Transmission Date: 20070707
  Serious: Yes (Hospitalization)
  Sender: FDA-Public Use
  Company Number: 2000-08-0903

PATIENT
  Age: 1 Day
  Sex: Male
  Weight: 2.3 kg

DRUGS (3)
  1. CLARITYNE (LORATADINE) (LORATADINE) [Suspect]
     Indication: ILL-DEFINED DISORDER
     Dosage: 10 MG; QD; PO
     Route: 048
     Dates: end: 19980915
  2. PROZAC [Suspect]
     Indication: ILL-DEFINED DISORDER
     Dosage: 20 MG; BID; PO
     Route: 048
     Dates: start: 19980325, end: 19980407
  3. OXAZEPAM [Suspect]
     Indication: ILL-DEFINED DISORDER
     Dosage: 50 MG; QID; PO
     Route: 048
     Dates: end: 19980915

REACTIONS (5)
  - DRUG EXPOSURE DURING PREGNANCY [None]
  - DRUG WITHDRAWAL SYNDROME NEONATAL [None]
  - FOETAL GROWTH RETARDATION [None]
  - INFANTILE APNOEIC ATTACK [None]
  - PREMATURE BABY [None]
